FAERS Safety Report 15630699 (Version 2)
Quarter: 2018Q4

REPORT INFORMATION
  Report Type: Spontaneous
  Country: FR (occurrence: FR)
  Receive Date: 20181119
  Receipt Date: 20181226
  Transmission Date: 20190205
  Serious: Yes (Other)
  Sender: FDA-Public Use
  Company Number: FR-AMGEN-FRASP2018161727

PATIENT
  Age: 65 Year
  Sex: Female
  Weight: 40 kg

DRUGS (3)
  1. OMEPRAZOLE. [Concomitant]
     Active Substance: OMEPRAZOLE
     Dosage: UNK
  2. INIPOMP [Concomitant]
     Active Substance: PANTOPRAZOLE SODIUM
  3. PROLIA [Suspect]
     Active Substance: DENOSUMAB
     Indication: PRODUCT USED FOR UNKNOWN INDICATION
     Dosage: UNK, Q6MO
     Route: 058
     Dates: start: 2012

REACTIONS (9)
  - Gastroenteritis [Unknown]
  - Liver disorder [Unknown]
  - Laryngitis [Unknown]
  - Musculoskeletal stiffness [Unknown]
  - Malaise [Unknown]
  - Musculoskeletal pain [Unknown]
  - Syncope [Unknown]
  - Chills [Unknown]
  - Headache [Unknown]

NARRATIVE: CASE EVENT DATE: 201811
